FAERS Safety Report 8409186-5 (Version None)
Quarter: 2012Q2

REPORT INFORMATION
  Report Type: 
  Country: None (occurrence: None)
  Receive Date: 20120604
  Receipt Date: 20120528
  Transmission Date: 20120825
  Serious: Yes (Hospitalization, Other)
  Sender: FDA-Public Use
  Company Number: CA-ABBOTT-12P-028-0934668-00

PATIENT
  Sex: Male
  Weight: 69.462 kg

DRUGS (7)
  1. LUPRON DEPOT [Suspect]
     Indication: PROSTATE CANCER
     Dates: start: 20031003
  2. XGEVA 120MG/1.7ML SOLUTION [Concomitant]
     Indication: PRODUCT USED FOR UNKNOWN INDICATION
     Route: 058
  3. CESAMET [Concomitant]
     Indication: PRODUCT USED FOR UNKNOWN INDICATION
     Route: 048
  4. DILAUDID [Concomitant]
     Indication: PRODUCT USED FOR UNKNOWN INDICATION
  5. HYDROMORPHONE HCL [Concomitant]
     Indication: PRODUCT USED FOR UNKNOWN INDICATION
  6. CALCITONIN SALMON [Concomitant]
     Indication: PRODUCT USED FOR UNKNOWN INDICATION
     Route: 045
  7. JAMP-SENNA [Concomitant]
     Indication: PRODUCT USED FOR UNKNOWN INDICATION
     Route: 048

REACTIONS (2)
  - PAIN [None]
  - PROSTATE CANCER METASTATIC [None]
